FAERS Safety Report 10665633 (Version 1)
Quarter: 2014Q4

REPORT INFORMATION
  Report Type: Spontaneous
  Country: US (occurrence: US)
  Receive Date: 20141219
  Receipt Date: 20141219
  Transmission Date: 20150529
  Serious: No
  Sender: FDA-Public Use
  Company Number: US-SHIONOGI, INC-2014000937

PATIENT
  Age: 60 Year
  Sex: Female

DRUGS (9)
  1. OSPHENA [Suspect]
     Active Substance: OSPEMIFENE
     Dosage: 60 MG, QOD
     Route: 065
     Dates: start: 20140915
  2. ESTROGEN [Concomitant]
     Active Substance: ESTRONE\SUS SCROFA OVARY
     Indication: PRODUCT USED FOR UNKNOWN INDICATION
     Dosage: UNK LOW DOSE SELF DOSED
     Route: 062
  3. SYNTHROID [Concomitant]
     Active Substance: LEVOTHYROXINE SODIUM
     Indication: PRODUCT USED FOR UNKNOWN INDICATION
     Dosage: .125 MG, QD
     Route: 065
  4. RELISTOR [Concomitant]
     Active Substance: METHYLNALTREXONE BROMIDE
     Indication: GASTROINTESTINAL HYPOMOTILITY
     Dosage: UNK, QOD
     Route: 058
  5. GABAPENTIN. [Concomitant]
     Active Substance: GABAPENTIN
     Indication: PRODUCT USED FOR UNKNOWN INDICATION
     Dosage: 800 MG, TID
     Route: 065
  6. OSPHENA [Suspect]
     Active Substance: OSPEMIFENE
     Indication: PRODUCT USED FOR UNKNOWN INDICATION
     Dosage: UNK
     Route: 065
     Dates: start: 201403, end: 20140901
  7. ZYRTEC [Concomitant]
     Active Substance: CETIRIZINE HYDROCHLORIDE
     Indication: DRUG HYPERSENSITIVITY
     Dosage: UNK DAILY
     Route: 065
  8. OXYGEN. [Concomitant]
     Active Substance: OXYGEN
     Indication: PRODUCT USED FOR UNKNOWN INDICATION
     Dosage: UNK
     Route: 045
  9. FENTANYL. [Concomitant]
     Active Substance: FENTANYL
     Indication: PRODUCT USED FOR UNKNOWN INDICATION
     Dosage: .25 ?G, UNK
     Route: 062

REACTIONS (8)
  - Vulvovaginal pain [Unknown]
  - Proctalgia [Unknown]
  - Vaginal discharge [Unknown]
  - Inappropriate schedule of drug administration [Unknown]
  - Labelled drug-drug interaction medication error [Unknown]
  - Hyperhidrosis [Recovered/Resolved]
  - Rectal discharge [Recovered/Resolved]
  - Hot flush [Recovering/Resolving]

NARRATIVE: CASE EVENT DATE: 201405
